FAERS Safety Report 7942049-8 (Version None)
Quarter: 2011Q4

REPORT INFORMATION
  Report Type: 
  Country: None (occurrence: None)
  Receive Date: 20111128
  Receipt Date: 20111118
  Transmission Date: 20120403
  Serious: Yes (Hospitalization, Other)
  Sender: FDA-Public Use
  Company Number: US-BAYER-201012511NA

PATIENT
  Sex: Female
  Weight: 129 kg

DRUGS (11)
  1. YASMIN [Suspect]
     Indication: MENSTRUAL CYCLE MANAGEMENT
  2. DROSPIRENONE AND ETHINYL ESTRADIOL [Suspect]
     Indication: MENORRHAGIA
  3. YASMIN [Suspect]
     Indication: MIGRAINE
     Dosage: UNK
     Dates: start: 20040801, end: 20080801
  4. DROSPIRENONE AND ETHINYL ESTRADIOL [Suspect]
     Indication: MIGRAINE
     Dosage: UNK
     Dates: start: 20070901, end: 20080801
  5. DROSPIRENONE AND ETHINYL ESTRADIOL [Suspect]
     Indication: MENSTRUAL CYCLE MANAGEMENT
  6. TRANXENE [Concomitant]
     Route: 048
  7. DEPAKOTE [Concomitant]
     Route: 048
  8. ALLEGRA [Concomitant]
     Route: 048
  9. IBUPROFEN [Concomitant]
  10. MOTRIN [Concomitant]
  11. YASMIN [Suspect]
     Indication: MENORRHAGIA

REACTIONS (13)
  - FLATULENCE [None]
  - ANXIETY [None]
  - GALLBLADDER DISORDER [None]
  - CONSTIPATION [None]
  - DEPRESSION [None]
  - SCAR [None]
  - DIARRHOEA [None]
  - CHOLECYSTITIS CHRONIC [None]
  - ABDOMINAL PAIN [None]
  - DYSPEPSIA [None]
  - SUTURE RELATED COMPLICATION [None]
  - ABDOMINAL DISTENSION [None]
  - INFECTIOUS MONONUCLEOSIS [None]
